FAERS Safety Report 8111303-1 (Version None)
Quarter: 2012Q1

REPORT INFORMATION
  Report Type: 
  Country: None (occurrence: None)
  Receive Date: 20120203
  Receipt Date: 20110817
  Transmission Date: 20120608
  Serious: No
  Sender: FDA-Public Use
  Company Number: US-GLAXOSMITHKLINE-A0941376A

PATIENT
  Age: 55 Year
  Sex: Female
  Weight: 63.6 kg

DRUGS (4)
  1. GEODON [Concomitant]
  2. KLONOPIN [Concomitant]
  3. LAMICTAL [Suspect]
     Indication: DEPRESSION
     Dosage: 500MG PER DAY
     Route: 048
     Dates: start: 20110815
  4. LEXAPRO [Concomitant]

REACTIONS (1)
  - SOMNOLENCE [None]
